FAERS Safety Report 6058480-4 (Version None)
Quarter: 2009Q1

REPORT INFORMATION
  Report Type: 
  Country: None (occurrence: None)
  Receive Date: 20090130
  Receipt Date: 20090122
  Transmission Date: 20090719
  Serious: No
  Sender: FDA-Public Use
  Company Number: PHHY2009AT02724

PATIENT
  Sex: Female

DRUGS (8)
  1. TASIGNA [Suspect]
     Indication: CHRONIC MYELOID LEUKAEMIA
     Dosage: UNK
     Dates: start: 20090120
  2. PANTOPRAZOLE SODIUM [Interacting]
     Dosage: 20 MG
  3. REPARIL [Interacting]
  4. DOLO-NEUROBION [Interacting]
  5. ROCALTROL [Interacting]
  6. LEGALON [Interacting]
  7. SORTIS [Interacting]
  8. DAFLON [Interacting]

REACTIONS (3)
  - DRUG INTERACTION [None]
  - PARAESTHESIA [None]
  - TREMOR [None]
